FAERS Safety Report 16101272 (Version 1)
Quarter: 2019Q1

REPORT INFORMATION
  Report Type: Spontaneous
  Country: US (occurrence: US)
  Receive Date: 20190321
  Receipt Date: 20190321
  Transmission Date: 20190418
  Serious: No
  Sender: FDA-Public Use
  Company Number: US-ACTELION-A-NJ2019-187235

PATIENT
  Sex: Female

DRUGS (3)
  1. AMLODIPINE [Concomitant]
     Active Substance: AMLODIPINE BESYLATE
  2. UPTRAVI [Suspect]
     Active Substance: SELEXIPAG
     Indication: PULMONARY ARTERIAL HYPERTENSION
     Dosage: 200 MCG, BID
     Route: 048
     Dates: start: 201901
  3. TADALAFIL. [Concomitant]
     Active Substance: TADALAFIL

REACTIONS (4)
  - Sinus disorder [Unknown]
  - Nasal congestion [Unknown]
  - Constipation [Unknown]
  - Rectal discharge [Unknown]
